FAERS Safety Report 4841153-0 (Version None)
Quarter: 2005Q4

REPORT INFORMATION
  Report Type: 
  Country: None (occurrence: None)
  Receive Date: 20051130
  Receipt Date: 20051013
  Transmission Date: 20060501
  Serious: No
  Sender: FDA-Public Use
  Company Number: US-BRISTOL-MYERS SQUIBB COMPANY-13143862

PATIENT
  Age: 54 Year
  Sex: Male

DRUGS (2)
  1. ABILIFY [Suspect]
     Indication: SCHIZOPHRENIA, PARANOID TYPE
     Route: 048
     Dates: start: 20050901, end: 20050901
  2. ABILIFY [Suspect]
     Route: 048
     Dates: start: 20050901, end: 20051010

REACTIONS (1)
  - PRIAPISM [None]
